FAERS Safety Report 15591424 (Version 1)
Quarter: 2018Q4

REPORT INFORMATION
  Report Type: Spontaneous
  Country: US (occurrence: US)
  Receive Date: 20181107
  Receipt Date: 20181107
  Transmission Date: 20190205
  Serious: No
  Sender: FDA-Public Use
  Company Number: US-PFIZER INC-2018455332

PATIENT
  Age: 10 Year
  Sex: Male

DRUGS (1)
  1. GENOTROPIN [Suspect]
     Active Substance: SOMATROPIN
     Dosage: 1.2 MG, DAILY (CARTRIDGE)
     Dates: start: 20171217

REACTIONS (3)
  - Thyroxine increased [Unknown]
  - Blood bilirubin increased [Unknown]
  - Product dose omission [Unknown]

NARRATIVE: CASE EVENT DATE: 20180330
